FAERS Safety Report 22537014 (Version 3)
Quarter: 2023Q2

REPORT INFORMATION
  Report Type: Spontaneous
  Country: US (occurrence: US)
  Receive Date: 20230608
  Receipt Date: 20230623
  Transmission Date: 20230722
  Serious: No
  Sender: FDA-Public Use
  Company Number: US-ALEMBIC PHARMACUETICALS LIMITED-2023SCAL000250

PATIENT

DRUGS (1)
  1. ASENAPINE [Suspect]
     Active Substance: ASENAPINE
     Indication: Schizoaffective disorder
     Dosage: 10 MILLIGRAM
     Route: 048
     Dates: start: 201701

REACTIONS (2)
  - Product use complaint [Unknown]
  - Sedation [Not Recovered/Not Resolved]
